FAERS Safety Report 24914966 (Version 1)
Quarter: 2025Q1

REPORT INFORMATION
  Report Type: Spontaneous
  Country: CA (occurrence: CA)
  Receive Date: 20250203
  Receipt Date: 20250203
  Transmission Date: 20250409
  Serious: Yes (Hospitalization, Other)
  Sender: NOVO NORDISK
  Company Number: CA-NOVOPROD-1358277

PATIENT
  Age: 55 Year
  Sex: Female
  Weight: 97 kg

DRUGS (22)
  1. OZEMPIC [Suspect]
     Active Substance: SEMAGLUTIDE
     Indication: Product used for unknown indication
  2. INFLIXIMAB [Suspect]
     Active Substance: INFLIXIMAB
     Dates: start: 20221206, end: 20230130
  3. INFLIXIMAB [Suspect]
     Active Substance: INFLIXIMAB
     Dates: start: 20230130, end: 20230328
  4. INFLIXIMAB [Suspect]
     Active Substance: INFLIXIMAB
     Dates: start: 20230328
  5. INFLIXIMAB [Suspect]
     Active Substance: INFLIXIMAB
     Dates: start: 20230718
  6. INFLIXIMAB [Suspect]
     Active Substance: INFLIXIMAB
     Dates: start: 20230918
  7. INFLIXIMAB [Suspect]
     Active Substance: INFLIXIMAB
     Dates: start: 20230918
  8. INFLIXIMAB [Suspect]
     Active Substance: INFLIXIMAB
     Dates: start: 20231116, end: 20231118
  9. INFLIXIMAB [Suspect]
     Active Substance: INFLIXIMAB
     Dates: start: 20240220
  10. INFLIXIMAB [Suspect]
     Active Substance: INFLIXIMAB
     Dates: start: 20240220
  11. INFLIXIMAB [Suspect]
     Active Substance: INFLIXIMAB
     Dates: start: 20240220
  12. INFLIXIMAB [Suspect]
     Active Substance: INFLIXIMAB
     Dates: start: 20240611
  13. INFLIXIMAB [Suspect]
     Active Substance: INFLIXIMAB
     Dates: start: 20221101
  14. INFLIXIMAB [Suspect]
     Active Substance: INFLIXIMAB
     Dates: start: 20221101, end: 202211
  15. INFLIXIMAB [Suspect]
     Active Substance: INFLIXIMAB
     Indication: Crohn^s disease
     Dates: start: 20221019
  16. SEROQUEL [Concomitant]
     Active Substance: QUETIAPINE FUMARATE
     Indication: Product used for unknown indication
  17. SEROQUEL [Concomitant]
     Active Substance: QUETIAPINE FUMARATE
  18. CIPRALEX [Concomitant]
     Active Substance: ESCITALOPRAM OXALATE
     Indication: Product used for unknown indication
  19. GLUCOSAMINE [Concomitant]
     Active Substance: GLUCOSAMINE
     Indication: Product used for unknown indication
  20. CANNABIS SATIVA SUBSP. INDICA TOP [Concomitant]
     Active Substance: CANNABIS SATIVA SUBSP. INDICA TOP
     Indication: Product used for unknown indication
  21. BUDESONIDE [Concomitant]
     Active Substance: BUDESONIDE
     Indication: Product used for unknown indication
  22. CHOLECALCIFEROL [Concomitant]
     Active Substance: CHOLECALCIFEROL
     Indication: Product used for unknown indication

REACTIONS (19)
  - Gastrointestinal disorder [Recovered/Resolved]
  - Gastrointestinal disorder [Recovered/Resolved]
  - Gastrointestinal disorder [Recovered/Resolved]
  - Hypertension [Not Recovered/Not Resolved]
  - Fall [Not Recovered/Not Resolved]
  - Shoulder operation [Unknown]
  - Inflammatory bowel disease [Unknown]
  - Vomiting [Unknown]
  - Nausea [Unknown]
  - Abdominal pain [Unknown]
  - Sacroiliitis [Unknown]
  - Blood pressure systolic increased [Not Recovered/Not Resolved]
  - Heart rate decreased [Recovered/Resolved]
  - Arthralgia [Recovered/Resolved]
  - Harvey-Bradshaw index abnormal [Recovered/Resolved]
  - Heart rate decreased [Not Recovered/Not Resolved]
  - Weight increased [Not Recovered/Not Resolved]
  - Weight decreased [Unknown]
  - Diarrhoea [Unknown]

NARRATIVE: CASE EVENT DATE: 20221101
